FAERS Safety Report 6712973-2 (Version None)
Quarter: 2010Q2

REPORT INFORMATION
  Report Type: 
  Country: None (occurrence: None)
  Receive Date: 20100505
  Receipt Date: 20100505
  Transmission Date: 20101027
  Serious: Yes (Life-Threatening, Hospitalization)
  Sender: FDA-Public Use
  Company Number: None

PATIENT
  Age: 12 Year
  Sex: Female
  Weight: 44.5 kg

DRUGS (8)
  1. ZOSYN [Suspect]
     Indication: CONDITION AGGRAVATED
     Dosage: 4.5 GM Q6H IV BOLUS
     Route: 040
     Dates: start: 20100416, end: 20100420
  2. ZOSYN [Suspect]
     Indication: CYSTIC FIBROSIS
     Dosage: 4.5 GM Q6H IV BOLUS
     Route: 040
     Dates: start: 20100416, end: 20100420
  3. ALBUTEROL NEBULIZED TREATMENTS [Concomitant]
  4. PULMOZYME NEBULIZED TREATMENTS [Concomitant]
  5. NEXIUM [Concomitant]
  6. HYPERTONIC SALINE NUBULIZED TREATMENTS [Concomitant]
  7. CREON TABLETS [Concomitant]
  8. GENTAMICIN [Concomitant]

REACTIONS (3)
  - ABDOMINAL PAIN [None]
  - HAEMOGLOBIN DECREASED [None]
  - MENTAL STATUS CHANGES [None]
